FAERS Safety Report 5566701-7 (Version None)
Quarter: 2007Q4

REPORT INFORMATION
  Report Type: 
  Country: None (occurrence: None)
  Receive Date: 20071219
  Receipt Date: 20071204
  Transmission Date: 20080405
  Serious: Yes (Hospitalization)
  Sender: FDA-Public Use
  Company Number: US-MERCK-0712USA01521

PATIENT
  Age: 79 Year
  Sex: Male

DRUGS (8)
  1. DECADRON [Suspect]
     Indication: MULTIPLE MYELOMA
     Route: 048
     Dates: start: 20060406
  2. REVLIMID [Suspect]
     Indication: MULTIPLE MYELOMA
     Route: 048
     Dates: start: 20070427, end: 20070512
  3. REVLIMID [Suspect]
     Route: 048
     Dates: start: 20070308
  4. ZOMETA [Concomitant]
     Route: 065
  5. FLOMAX [Concomitant]
     Route: 065
  6. LASIX [Concomitant]
     Route: 065
  7. ACCUPRIL [Concomitant]
     Route: 065
  8. PROCRIT [Concomitant]
     Indication: RENAL FAILURE CHRONIC
     Route: 065
     Dates: start: 20060201

REACTIONS (3)
  - ARTHROPATHY [None]
  - MALAISE [None]
  - RENAL FAILURE [None]
